FAERS Safety Report 8562425-2 (Version None)
Quarter: 2012Q3

REPORT INFORMATION
  Report Type: 
  Country: None (occurrence: None)
  Receive Date: 20120802
  Receipt Date: 20120709
  Transmission Date: 20120928
  Serious: No
  Sender: FDA-Public Use
  Company Number: US-AMGEN-USASP2011048988

PATIENT
  Age: 88 Year
  Sex: Male
  Weight: 80.7 kg

DRUGS (1)
  1. ENBREL [Suspect]
     Indication: SPONDYLOARTHROPATHY
     Dosage: 50 MG, QWK
     Route: 058
     Dates: start: 20100317

REACTIONS (5)
  - RHEUMATOID ARTHRITIS [None]
  - INCORRECT DOSE ADMINISTERED [None]
  - PAIN IN EXTREMITY [None]
  - OEDEMA PERIPHERAL [None]
  - FATIGUE [None]
